FAERS Safety Report 8826546 (Version 1)
Quarter: 2012Q4

REPORT INFORMATION
  Report Type: 
  Country: US (occurrence: US)
  Receive Date: 20121005
  Receipt Date: 20121005
  Transmission Date: 20130627
  Serious: Yes (Other)
  Sender: FDA-Public Use
  Company Number: PHEH2012US019196

PATIENT
  Sex: Female

DRUGS (5)
  1. DIOVAN [Suspect]
     Dosage: UNK UKN, UNK
  2. TIMOLOL [Suspect]
     Dosage: UNK UKN, UNK
  3. SIMVASTATIN [Suspect]
     Dosage: UNK UKN, UNK
  4. ADVAIR [Concomitant]
     Dosage: UNK UKN, UNK
  5. COMBIVENT [Concomitant]
     Dosage: UNK UKN, UNK

REACTIONS (1)
  - Glaucoma [Unknown]
